FAERS Safety Report 6387953-X (Version None)
Quarter: 2009Q4

REPORT INFORMATION
  Report Type: 
  Country: None (occurrence: None)
  Receive Date: 20091005
  Receipt Date: 20090924
  Transmission Date: 20100525
  Serious: Yes (Hospitalization)
  Sender: FDA-Public Use
  Company Number: JP-PFIZER INC-2009246425

PATIENT
  Age: 24 Year

DRUGS (5)
  1. AZITHROMYCIN [Suspect]
     Indication: MYCOBACTERIUM AVIUM COMPLEX INFECTION
     Dosage: 1200 MG, WEEKLY
     Route: 048
     Dates: start: 20070206, end: 20080818
  2. VALGANCICLOVIR HYDROCHLORIDE [Concomitant]
     Route: 048
     Dates: start: 20070219, end: 20080818
  3. LENDORMIN [Concomitant]
     Route: 048
     Dates: start: 20080401, end: 20090202
  4. KALETRA [Concomitant]
     Dosage: UNK
     Route: 048
     Dates: start: 20070319
  5. TRUVADA [Concomitant]
     Dosage: UNK
     Route: 048
     Dates: start: 20070319

REACTIONS (2)
  - ALCOHOLIC PSYCHOSIS [None]
  - ANOGENITAL WARTS [None]
